FAERS Safety Report 17682761 (Version 3)
Quarter: 2025Q3

REPORT INFORMATION
  Report Type: Spontaneous
  Country: EU (occurrence: EU)
  Receive Date: 20200419
  Receipt Date: 20250704
  Transmission Date: 20251021
  Serious: Yes (Other)
  Sender: AUROBINDO
  Company Number: EU-002147023-NVSC2020CZ094013

PATIENT
  Age: 41 Year
  Sex: Male
  Weight: 51 kg

DRUGS (5)
  1. LEVETIRACETAM [Suspect]
     Active Substance: LEVETIRACETAM
     Indication: Epilepsy
     Route: 065
     Dates: start: 201807
  2. LEVETIRACETAM [Suspect]
     Active Substance: LEVETIRACETAM
     Indication: Oedema
  3. DEXAMETHASONE [Suspect]
     Active Substance: DEXAMETHASONE
     Indication: Oedema
     Route: 065
     Dates: start: 201807
  4. VALPROATE [Suspect]
     Active Substance: VALPROIC ACID
     Indication: Oedema
     Route: 065
     Dates: start: 201807
  5. VALPROATE [Suspect]
     Active Substance: VALPROIC ACID
     Indication: Epilepsy

REACTIONS (1)
  - Epilepsy [Unknown]

NARRATIVE: CASE EVENT DATE: 20180101
